FAERS Safety Report 9120185 (Version 2)
Quarter: 2013Q1

REPORT INFORMATION
  Report Type: Spontaneous
  Country: US (occurrence: US)
  Receive Date: 20130226
  Receipt Date: 20130321
  Transmission Date: 20140127
  Serious: No
  Sender: FDA-Public Use
  Company Number: US-PFIZER INC-2013067920

PATIENT
  Age: 81 Year
  Sex: Female
  Weight: 74.83 kg

DRUGS (5)
  1. VFEND [Suspect]
     Indication: PNEUMONIA FUNGAL
     Dosage: 200 MG, 2X/DAY
     Dates: start: 20130215, end: 20130220
  2. VFEND [Suspect]
     Indication: ASPERGILLUS INFECTION
     Dosage: 200 MG DAILY
     Route: 048
     Dates: start: 20130220, end: 20130221
  3. HYDRODIURIL [Concomitant]
     Indication: HYPERTENSION
     Dosage: 50 MG, DAILY
  4. CELEBREX [Concomitant]
     Indication: RHEUMATOID ARTHRITIS
     Dosage: 200 MG, DAILY
  5. SYNTHROID [Concomitant]
     Indication: HYPOTHYROIDISM
     Dosage: 125 MG, 1X/DAY

REACTIONS (2)
  - Visual impairment [Recovered/Resolved]
  - Colour blindness acquired [Recovered/Resolved]
